FAERS Safety Report 25630413 (Version 2)
Quarter: 2025Q3

REPORT INFORMATION
  Report Type: Spontaneous
  Country: US (occurrence: US)
  Receive Date: 20250801
  Receipt Date: 20250903
  Transmission Date: 20251021
  Serious: No
  Sender: HETERO
  Company Number: US-HETERO-HET2025US04245

PATIENT
  Sex: Male
  Weight: 59.8 kg

DRUGS (1)
  1. PIRFENIDONE [Suspect]
     Active Substance: PIRFENIDONE
     Indication: Lung disorder
     Route: 048
     Dates: end: 20250718

REACTIONS (2)
  - Wrong dose [Unknown]
  - Extra dose administered [Unknown]
